FAERS Safety Report 11679405 (Version 2)
Quarter: 2015Q4

REPORT INFORMATION
  Report Type: Spontaneous
  Country: US (occurrence: US)
  Receive Date: 20151027
  Receipt Date: 20151104
  Transmission Date: 20160304
  Serious: No
  Sender: FDA-Public Use
  Company Number: US-ELI_LILLY_AND_COMPANY-US201005003401

PATIENT
  Age: 78 Year
  Sex: Female

DRUGS (5)
  1. FORTEO [Suspect]
     Active Substance: TERIPARATIDE
     Dosage: 20 UG, DAILY (1/D)
  2. FORTEO [Suspect]
     Active Substance: TERIPARATIDE
     Dosage: 20 UG, DAILY (1/D)
  3. FORTEO [Suspect]
     Active Substance: TERIPARATIDE
     Indication: OSTEOPOROSIS
     Dosage: 20 UG, DAILY (1/D)
     Route: 065
  4. FORTEO [Suspect]
     Active Substance: TERIPARATIDE
     Dosage: 20 UG, DAILY (1/D)
  5. ANTIHYPERTENSIVES [Concomitant]
     Active Substance: UNSPECIFIED INGREDIENT
     Indication: HYPERTENSION

REACTIONS (14)
  - Abdominal pain [Unknown]
  - Wrist fracture [Unknown]
  - Lower extremity mass [Unknown]
  - Drug dose omission [Unknown]
  - Dizziness [Unknown]
  - Back pain [Unknown]
  - Upper extremity mass [Not Recovered/Not Resolved]
  - Ataxia [Unknown]
  - Bone disorder [Unknown]
  - Blood pressure decreased [Unknown]
  - Gait disturbance [Unknown]
  - Alopecia [Not Recovered/Not Resolved]
  - Movement disorder [Unknown]
  - Exostosis [Unknown]

NARRATIVE: CASE EVENT DATE: 200910
